FAERS Safety Report 4689428-2 (Version None)
Quarter: 2005Q2

REPORT INFORMATION
  Report Type: 
  Country: None (occurrence: None)
  Receive Date: 20050608
  Receipt Date: 20050204
  Transmission Date: 20051028
  Serious: No
  Sender: FDA-Public Use
  Company Number: 2005-BP-00126BP

PATIENT
  Age: 78 Year
  Sex: Female
  Weight: 40 kg

DRUGS (7)
  1. SPIRIVA [Suspect]
     Indication: CHRONIC OBSTRUCTIVE PULMONARY DISEASE
     Dosage: 18 MCG (18 MCG), IH
     Route: 055
     Dates: start: 20041101
  2. SINGULAIR [Suspect]
     Dosage: 5 MG (5 MG QHS)
     Dates: start: 20041201
  3. SINGULAIR [Suspect]
     Dosage: 10 MG (10 MG QHS)
     Dates: start: 20040101, end: 20040101
  4. FLONASE (FLUTCASONE PROPIONATE) [Concomitant]
  5. ALBUTEROL [Concomitant]
  6. ADVAIR DISKUS 100/50 [Concomitant]
  7. ALLERGY IMMUNE THERAPY [Concomitant]

REACTIONS (2)
  - ARTHRALGIA [None]
  - ASTHENIA [None]
